FAERS Safety Report 8317000-1 (Version None)
Quarter: 2012Q2

REPORT INFORMATION
  Report Type: 
  Country: None (occurrence: None)
  Receive Date: 20120425
  Receipt Date: 20120416
  Transmission Date: 20120825
  Serious: Yes (Life-Threatening, Hospitalization, Other)
  Sender: FDA-Public Use
  Company Number: AUR-APL-2012-00527

PATIENT
  Age: 44 Year
  Sex: Male

DRUGS (15)
  1. SAXAGLIPTIN (SAXAGLIPTIN) [Suspect]
     Indication: TYPE 2 DIABETES MELLITUS
  2. ANTI-COAGULANT (ANTICOAGULANT SODIUM CITRATE) [Concomitant]
  3. METOPROLOL TARTRATE [Suspect]
     Indication: PRODUCT USED FOR UNKNOWN INDICATION
  4. BLINDED THERAPY [Suspect]
     Indication: TYPE 2 DIABETES MELLITUS
     Dosage: 40 IU
     Dates: start: 20110202, end: 20110517
  5. DIOVAN [Suspect]
     Indication: PRODUCT USED FOR UNKNOWN INDICATION
  6. ASPIRIN [Concomitant]
  7. ANGIOTENSIN CONVERTING ENZYME [Concomitant]
  8. DIURETICS (DIURETICS) [Concomitant]
  9. LASIX [Suspect]
     Indication: PRODUCT USED FOR UNKNOWN INDICATION
  10. SPIRONOLACTONE [Suspect]
     Indication: PRODUCT USED FOR UNKNOWN INDICATION
  11. EZETIMIBE [Concomitant]
  12. BETA BLOCKER (BETA BLOCKER AGENTS) [Concomitant]
  13. VERAPAMIL HYDROCHLORIDE [Suspect]
     Indication: PRODUCT USED FOR UNKNOWN INDICATION
  14. LANTUS [Suspect]
     Indication: DIABETES MELLITUS
     Dosage: 40 IU
     Dates: start: 20110202, end: 20110517
  15. ALDOSTERONE INHIBITOR (ALDOSTERONE ANTAGONISTS) [Concomitant]

REACTIONS (4)
  - BRADYCARDIA [None]
  - RENAL FAILURE ACUTE [None]
  - ASTHENIA [None]
  - HYPOXIA [None]
